FAERS Safety Report 24802612 (Version 1)
Quarter: 2025Q1

REPORT INFORMATION
  Report Type: Spontaneous
  Country: US (occurrence: US)
  Receive Date: 20250103
  Receipt Date: 20250103
  Transmission Date: 20250409
  Serious: No
  Sender: TEVA
  Company Number: US-TEVA-VS-3276954

PATIENT
  Age: 81 Year
  Sex: Female

DRUGS (1)
  1. TRAMADOL HYDROCHLORIDE [Suspect]
     Active Substance: TRAMADOL HYDROCHLORIDE
     Indication: Pain
     Route: 048

REACTIONS (4)
  - Abdominal discomfort [Unknown]
  - Drug effect less than expected [Unknown]
  - Nausea [Unknown]
  - Pruritus [Unknown]
